FAERS Safety Report 5234855-8 (Version None)
Quarter: 2007Q1

REPORT INFORMATION
  Report Type: 
  Country: None (occurrence: None)
  Receive Date: 20070209
  Receipt Date: 20070130
  Transmission Date: 20070707
  Serious: Yes (Death, Life-Threatening, Hospitalization, Other)
  Sender: FDA-Public Use
  Company Number: JP-PFIZER INC-2007007932

PATIENT
  Sex: Male
  Weight: 49 kg

DRUGS (10)
  1. SOLU-MEDROL [Suspect]
     Indication: RHEUMATOID ARTHRITIS
     Route: 048
     Dates: start: 20050426, end: 20050519
  2. ETANERCEPT [Suspect]
     Indication: RHEUMATOID ARTHRITIS
     Dosage: DAILY DOSE:25MG
     Route: 058
     Dates: start: 20050510, end: 20050816
  3. RINDERON [Suspect]
     Indication: RHEUMATOID ARTHRITIS
     Route: 048
  4. CYCLOPHOSPHAMIDE [Suspect]
     Indication: RHEUMATOID ARTHRITIS
     Route: 042
  5. AMPHOTERICIN B [Concomitant]
     Indication: PROPHYLAXIS
     Route: 048
  6. SODIUM ALGINATE [Concomitant]
     Route: 048
  7. MOBIC [Concomitant]
     Indication: RHEUMATOID ARTHRITIS
     Dates: start: 20050422
  8. BENAMBAX [Concomitant]
     Indication: PROPHYLAXIS
     Dates: start: 20050425, end: 20050519
  9. MAGNESIUM OXIDE [Concomitant]
     Route: 048
  10. ALLOID [Concomitant]
     Indication: PROPHYLAXIS AGAINST GASTROINTESTINAL ULCER

REACTIONS (18)
  - ACUTE RESPIRATORY DISTRESS SYNDROME [None]
  - BLOOD CREATINE PHOSPHOKINASE INCREASED [None]
  - CARDIO-RESPIRATORY ARREST [None]
  - CONDITION AGGRAVATED [None]
  - CYTOMEGALOVIRUS INFECTION [None]
  - DISSEMINATED INTRAVASCULAR COAGULATION [None]
  - INFECTION IN AN IMMUNOCOMPROMISED HOST [None]
  - INTERSTITIAL LUNG DISEASE [None]
  - MULTI-ORGAN FAILURE [None]
  - PLATELET COUNT DECREASED [None]
  - PNEUMOCONIOSIS [None]
  - PNEUMOCYSTIS JIROVECI PNEUMONIA [None]
  - PSEUDOMONAS INFECTION [None]
  - PULMONARY ALVEOLAR HAEMORRHAGE [None]
  - RHEUMATOID VASCULITIS [None]
  - SPUTUM CULTURE POSITIVE [None]
  - STAPHYLOCOCCAL INFECTION [None]
  - THERAPEUTIC RESPONSE DECREASED [None]
